FAERS Safety Report 21034965 (Version 2)
Quarter: 2023Q4

REPORT INFORMATION
  Report Type: Spontaneous
  Country: JP (occurrence: JP)
  Receive Date: 20220701
  Receipt Date: 20231027
  Transmission Date: 20240109
  Serious: Yes (Other)
  Sender: FDA-Public Use
  Company Number: JP-PFIZER INC-PV202200012927

PATIENT
  Age: 49 Year
  Sex: Male
  Weight: 65.8 kg

DRUGS (10)
  1. SIROLIMUS [Suspect]
     Active Substance: SIROLIMUS
     Indication: Castleman^s disease
     Dosage: 1 MG ONCE EVERY OTHER DAY (1 MG,2 D)
     Route: 048
     Dates: start: 20210921, end: 20211006
  2. SIROLIMUS [Suspect]
     Active Substance: SIROLIMUS
     Dosage: INCREASED TO 1 MG ONCE DAILY
     Route: 048
     Dates: start: 20211007, end: 20211124
  3. SIROLIMUS [Suspect]
     Active Substance: SIROLIMUS
     Dosage: INCREASED TO THE ALTERNATE ORAL DOSES OF 1 MG X 1 AND 2 MG X 1 EVERY OTHER DAY
     Route: 048
     Dates: start: 20211125, end: 20220113
  4. RABEPRAZOLE SODIUM [Concomitant]
     Active Substance: RABEPRAZOLE SODIUM
     Dosage: UNK
     Route: 065
  5. ZINC [Concomitant]
     Active Substance: PYRITHIONE ZINC\ZINC\ZINC CHLORIDE
     Dosage: UNK
     Route: 065
  6. CALCIUM CARBONATE [Concomitant]
     Active Substance: CALCIUM CARBONATE
     Dosage: UNK
     Route: 065
  7. LANTHANUM CARBONATE [Concomitant]
     Active Substance: LANTHANUM CARBONATE
     Dosage: UNK
     Route: 065
  8. FUROSEMIDE [Concomitant]
     Active Substance: FUROSEMIDE
     Dosage: UNK
     Route: 065
  9. AMEZINIUM METILSULFATE [Concomitant]
     Active Substance: AMEZINIUM METILSULFATE
     Dosage: UNK
     Route: 065
  10. DROXIDOPA [Concomitant]
     Active Substance: DROXIDOPA
     Dosage: UNK
     Route: 065

REACTIONS (4)
  - Lymphopenia [Recovered/Resolved]
  - Leukopenia [Recovered/Resolved]
  - Pyrexia [Recovered/Resolved]
  - Off label use [Unknown]

NARRATIVE: CASE EVENT DATE: 20211021
